FAERS Safety Report 12159452 (Version 1)
Quarter: 2016Q1

REPORT INFORMATION
  Report Type: Report from Study
  Country: AU (occurrence: AU)
  Receive Date: 20160308
  Receipt Date: 20160308
  Transmission Date: 20160526
  Serious: Yes (Death, Other)
  Sender: FDA-Public Use
  Company Number: AU-BRISTOL-MYERS SQUIBB COMPANY-BMS-2016-015952

PATIENT
  Age: 69 Year
  Sex: Female
  Weight: 80 kg

DRUGS (1)
  1. NIVOLUMAB [Suspect]
     Active Substance: NIVOLUMAB
     Indication: LUNG CANCER METASTATIC
     Dosage: 270 MG, UNK
     Route: 042
     Dates: start: 20150927, end: 20151026

REACTIONS (1)
  - Death [Fatal]
